FAERS Safety Report 5529110-2 (Version None)
Quarter: 2007Q4

REPORT INFORMATION
  Report Type: 
  Country: None (occurrence: None)
  Receive Date: 20071129
  Receipt Date: 20061220
  Transmission Date: 20080405
  Serious: No
  Sender: FDA-Public Use
  Company Number: A0632311A

PATIENT
  Age: 18 Year
  Sex: Male

DRUGS (1)
  1. WELLBUTRIN SR [Suspect]
     Route: 048

REACTIONS (2)
  - DRUG INEFFECTIVE [None]
  - THERAPEUTIC RESPONSE UNEXPECTED [None]
